FAERS Safety Report 12617359 (Version 1)
Quarter: 2016Q3

REPORT INFORMATION
  Report Type: Spontaneous
  Country: US (occurrence: None)
  Receive Date: 20160802
  Receipt Date: 20160802
  Transmission Date: 20161109
  Serious: No
  Sender: FDA-Public Use
  Company Number: None

PATIENT

DRUGS (3)
  1. ATIVAN [Suspect]
     Active Substance: LORAZEPAM
  2. HALDOL [Suspect]
     Active Substance: HALOPERIDOL
  3. DILAUDID [Suspect]
     Active Substance: HYDROMORPHONE HYDROCHLORIDE

REACTIONS (4)
  - Pneumonia [None]
  - Respiratory failure [None]
  - Medication error [None]
  - Asphyxia [None]
